FAERS Safety Report 12425622 (Version 1)
Quarter: 2016Q2

REPORT INFORMATION
  Report Type: Spontaneous
  Country: US (occurrence: US)
  Receive Date: 20160601
  Receipt Date: 20160601
  Transmission Date: 20160815
  Serious: No
  Sender: FDA-Public Use
  Company Number: US-TEIKOKU PHARMA USA-TPU2016-00335

PATIENT
  Sex: Female
  Weight: 80.81 kg

DRUGS (2)
  1. LIDOCAINE PATCH [Suspect]
     Active Substance: LIDOCAINE
     Dates: start: 201605
  2. A LOT OF CONCOMITANT MEDICATIONS [Concomitant]

REACTIONS (2)
  - Paraesthesia [Unknown]
  - Hypoaesthesia [Not Recovered/Not Resolved]
